FAERS Safety Report 25849710 (Version 1)
Quarter: 2025Q3

REPORT INFORMATION
  Report Type: Spontaneous
  Country: GB (occurrence: GB)
  Receive Date: 20250926
  Receipt Date: 20250926
  Transmission Date: 20251020
  Serious: Yes (Other)
  Sender: ACCORD
  Company Number: None

PATIENT
  Age: 84 Year
  Sex: Female

DRUGS (8)
  1. AMITRIPTYLINE [Suspect]
     Active Substance: AMITRIPTYLINE
     Indication: Neuralgia
     Dates: start: 20250901, end: 20250902
  2. APIXABAN [Concomitant]
     Active Substance: APIXABAN
     Indication: Adverse drug reaction
  3. ATORVASTATIN [Concomitant]
     Active Substance: ATORVASTATIN
  4. INDAPAMIDE [Concomitant]
     Active Substance: INDAPAMIDE
  5. LANSOPRAZOLE [Concomitant]
     Active Substance: LANSOPRAZOLE
  6. LISINOPRIL [Concomitant]
     Active Substance: LISINOPRIL
  7. LORATADINE [Concomitant]
     Active Substance: LORATADINE
  8. ACETAMINOPHEN [Concomitant]
     Active Substance: ACETAMINOPHEN

REACTIONS (1)
  - Hypersensitivity [Not Recovered/Not Resolved]

NARRATIVE: CASE EVENT DATE: 20250901
